FAERS Safety Report 25470736 (Version 3)
Quarter: 2025Q4

REPORT INFORMATION
  Report Type: Report from Study
  Country: CA (occurrence: CA)
  Receive Date: 20250624
  Receipt Date: 20251029
  Transmission Date: 20260117
  Serious: Yes (Hospitalization, Other)
  Sender: ALEXION PHARMACEUTICALS
  Company Number: CA-AstraZeneca-CH-00895567A

PATIENT
  Age: 52 Year
  Sex: Female

DRUGS (5)
  1. ANIFROLUMAB [Suspect]
     Active Substance: ANIFROLUMAB
     Indication: Systemic lupus erythematosus
     Dosage: 300 MILLIGRAM, Q4W
     Dates: start: 20250328
  2. PREDNISONE [Concomitant]
     Active Substance: PREDNISONE
     Dosage: 5-7.5MG OD
     Route: 065
  3. HYDROXYCHLOROQUINE [Concomitant]
     Active Substance: HYDROXYCHLOROQUINE
     Dosage: 400 MILLIGRAM, QD
     Route: 065
  4. METHOTREXATE [Concomitant]
     Active Substance: METHOTREXATE
     Dosage: 15 MILLIGRAM, QW
     Route: 065
  5. MYCOPHENOLATE MOFETIL [Concomitant]
     Active Substance: MYCOPHENOLATE MOFETIL
     Dosage: 1000 MILLIGRAM, BID
     Route: 065

REACTIONS (7)
  - Abdominal pain [Not Recovered/Not Resolved]
  - Rectal haemorrhage [Not Recovered/Not Resolved]
  - Intestinal mass [Not Recovered/Not Resolved]
  - Crohn^s disease [Unknown]
  - Heart rate increased [Unknown]
  - Malaise [Unknown]
  - Precancerous lesion of digestive tract [Unknown]

NARRATIVE: CASE EVENT DATE: 20250527
